FAERS Safety Report 7399004-9 (Version None)
Quarter: 2011Q2

REPORT INFORMATION
  Report Type: 
  Country: None (occurrence: None)
  Receive Date: 20110407
  Receipt Date: 20110331
  Transmission Date: 20111010
  Serious: Yes (Other)
  Sender: FDA-Public Use
  Company Number: BR-ELI_LILLY_AND_COMPANY-BR201104000168

PATIENT
  Sex: Female

DRUGS (2)
  1. LANTUS [Concomitant]
     Dosage: UNK, UNKNOWN
     Route: 065
  2. HUMALOG [Suspect]
     Dosage: UNK, UNKNOWN
     Route: 065

REACTIONS (1)
  - BLOOD GLUCOSE INCREASED [None]
